FAERS Safety Report 7823517-6 (Version None)
Quarter: 2011Q4

REPORT INFORMATION
  Report Type: 
  Country: None (occurrence: None)
  Receive Date: 20111019
  Receipt Date: 20111013
  Transmission Date: 20120403
  Serious: Yes (Other)
  Sender: FDA-Public Use
  Company Number: JP-PFIZER INC-2011245426

PATIENT

DRUGS (3)
  1. CARELOAD [Suspect]
     Indication: PULMONARY HYPERTENSION
     Dosage: UNK
     Route: 048
  2. REVATIO [Suspect]
     Indication: PULMONARY HYPERTENSION
     Dosage: 60 MG/DAY
     Route: 048
  3. TRACLEER [Suspect]
     Indication: PULMONARY HYPERTENSION
     Dosage: UNK
     Route: 048

REACTIONS (1)
  - HYPERKALAEMIA [None]
